FAERS Safety Report 26202454 (Version 1)
Quarter: 2025Q4

REPORT INFORMATION
  Report Type: Spontaneous
  Country: CN (occurrence: CN)
  Receive Date: 20251226
  Receipt Date: 20251226
  Transmission Date: 20260118
  Serious: Yes (Hospitalization)
  Sender: ACCORD
  Company Number: CN-Accord-519695

PATIENT
  Age: 55 Year
  Sex: Male

DRUGS (6)
  1. FLUOROURACIL [Suspect]
     Active Substance: FLUOROURACIL
     Indication: Hepatocellular carcinoma
     Dates: start: 20240920
  2. OXALIPLATIN [Suspect]
     Active Substance: OXALIPLATIN
     Indication: Hepatocellular carcinoma
     Dates: start: 20240920
  3. LEUCOVORIN CALCIUM [Suspect]
     Active Substance: LEUCOVORIN CALCIUM
     Indication: Hepatocellular carcinoma
     Dates: start: 20240920
  4. SINTILIMAB [Suspect]
     Active Substance: SINTILIMAB
     Indication: Hepatocellular carcinoma
     Dates: start: 20240920
  5. ENTECAVIR [Concomitant]
     Active Substance: ENTECAVIR
  6. LENVATINIB [Concomitant]
     Active Substance: LENVATINIB

REACTIONS (2)
  - Rhodococcus infection [Unknown]
  - Pyrexia [Recovered/Resolved]

NARRATIVE: CASE EVENT DATE: 20241001
